FAERS Safety Report 18140322 (Version 2)
Quarter: 2020Q3

REPORT INFORMATION
  Report Type: Spontaneous
  Country: BR (occurrence: BR)
  Receive Date: 20200812
  Receipt Date: 20200826
  Transmission Date: 20201103
  Serious: No
  Sender: FDA-Public Use
  Company Number: BR-GLAXOSMITHKLINE-BR2020152739

PATIENT
  Sex: Female
  Weight: 63 kg

DRUGS (10)
  1. NARAMIG [Suspect]
     Active Substance: NARATRIPTAN HYDROCHLORIDE
     Indication: PRODUCT USED FOR UNKNOWN INDICATION
     Dosage: UNK
  2. PROFENID [Suspect]
     Active Substance: KETOPROFEN
     Indication: PRODUCT USED FOR UNKNOWN INDICATION
     Dosage: UNK
  3. NAPROXEN. [Suspect]
     Active Substance: NAPROXEN
     Indication: PRODUCT USED FOR UNKNOWN INDICATION
     Dosage: UNK
  4. BRONCHO VAXOM (BACTERIAL LYSATES) [Suspect]
     Active Substance: INVESTIGATIONAL PRODUCT
     Indication: IMMUNOGLOBULINS INCREASED
     Dosage: UNK
  5. CEFALIUM [Suspect]
     Active Substance: ACETAMINOPHEN\CAFFEINE\DIHYDROERGOTAMINE MESYLATE\METOCLOPRAMIDE
     Indication: PRODUCT USED FOR UNKNOWN INDICATION
     Dosage: UNK
  6. MONTELAIR TABLET [Suspect]
     Active Substance: MONTELUKAST SODIUM
     Indication: ASTHMA
     Dosage: UNK
  7. 5?HYDROXYTRYPTOPHAN [Suspect]
     Active Substance: OXITRIPTAN
     Indication: SEROTONIN DEFICIENCY
     Dosage: UNK
  8. SYMBICORT [Suspect]
     Active Substance: BUDESONIDE\FORMOTEROL FUMARATE DIHYDRATE
     Indication: ASTHMA
     Dosage: UNK
  9. LAMICTAL [Suspect]
     Active Substance: LAMOTRIGINE
     Indication: MIGRAINE
     Dosage: UNK
  10. KETOPROFEN. [Suspect]
     Active Substance: KETOPROFEN
     Indication: PRODUCT USED FOR UNKNOWN INDICATION
     Dosage: UNK

REACTIONS (3)
  - Migraine [Unknown]
  - Product use in unapproved indication [Unknown]
  - Product prescribing issue [Unknown]
